FAERS Safety Report 12980473 (Version 1)
Quarter: 2016Q4

REPORT INFORMATION
  Report Type: Not Available
  Country: US (occurrence: US)
  Receive Date: 20161128
  Receipt Date: 20161128
  Transmission Date: 20170207
  Serious: Yes (Hospitalization)
  Sender: FDA-Public Use
  Company Number: US-ANIPHARMA-2016-US-009564

PATIENT
  Age: 38 Year
  Sex: Male

DRUGS (4)
  1. ALPRAZOLAM (NON-SPECIFIC) [Concomitant]
     Active Substance: ALPRAZOLAM
     Dosage: UNKNOWN
     Route: 065
  2. FENTANYL. [Suspect]
     Active Substance: FENTANYL
     Dosage: UNKNOWN
     Route: 065
  3. OXYCODONE (NON-SPECIFIC) [Suspect]
     Active Substance: OXYCODONE
     Dosage: UNKNOWN
     Route: 065
  4. MECLIZINE (NON-SPECIFIC) [Concomitant]
     Dosage: UNKNOWN
     Route: 065

REACTIONS (1)
  - Narcotic bowel syndrome [Unknown]
